FAERS Safety Report 7742500-2 (Version None)
Quarter: 2011Q3

REPORT INFORMATION
  Report Type: 
  Country: None (occurrence: None)
  Receive Date: 20110912
  Receipt Date: 20110817
  Transmission Date: 20111222
  Serious: No
  Sender: FDA-Public Use
  Company Number: US-ROXANE LABORATORIES, INC.-2011-RO-01167RO

PATIENT
  Age: 68 Year
  Sex: Male

DRUGS (1)
  1. FLUTICASONE PROPIONATE [Suspect]
     Indication: EAR PAIN
     Route: 045
     Dates: start: 20110726

REACTIONS (3)
  - LETHARGY [None]
  - HEADACHE [None]
  - VISION BLURRED [None]
